FAERS Safety Report 19052558 (Version 4)
Quarter: 2022Q4

REPORT INFORMATION
  Report Type: Report from Study
  Country: US (occurrence: US)
  Receive Date: 20210324
  Receipt Date: 20221222
  Transmission Date: 20230113
  Serious: Yes (Other)
  Sender: FDA-Public Use
  Company Number: NVSC2021US057895

PATIENT
  Sex: Male

DRUGS (1)
  1. EXJADE [Suspect]
     Active Substance: DEFERASIROX
     Indication: Product used for unknown indication
     Dosage: UNK
     Route: 065

REACTIONS (6)
  - Neoplasm malignant [Unknown]
  - Liver injury [Unknown]
  - Hepatic cancer [Unknown]
  - Haemochromatosis [Unknown]
  - Herpes zoster [Unknown]
  - Product dose omission issue [Unknown]
